FAERS Safety Report 9936754 (Version 1)
Quarter: 2014Q1

REPORT INFORMATION
  Report Type: Spontaneous
  Country: US (occurrence: None)
  Receive Date: 20140107
  Receipt Date: 20140107
  Transmission Date: 20141002
  Serious: Yes (Other)
  Sender: FDA-Public Use
  Company Number: 2011AP003092

PATIENT
  Age: 62 Year
  Sex: Female

DRUGS (3)
  1. FLUTICASONE PROPIONATE [Suspect]
     Indication: HYPERSENSITIVITY
     Route: 055
     Dates: start: 20111201
  2. METOPROLOL [Concomitant]
  3. SIMVASTATIN [Concomitant]

REACTIONS (1)
  - Epistaxis [None]
